FAERS Safety Report 9916923 (Version 1)
Quarter: 2014Q1

REPORT INFORMATION
  Report Type: Spontaneous
  Country: US (occurrence: US)
  Receive Date: 20140221
  Receipt Date: 20140221
  Transmission Date: 20141002
  Serious: Yes (Other)
  Sender: FDA-Public Use
  Company Number: US-PFIZER INC-2014046673

PATIENT
  Age: 87 Year
  Sex: Female

DRUGS (1)
  1. SUTENT [Suspect]
     Indication: RENAL CANCER
     Dosage: 50 MG, ONCE DAILY,  4 WEEKS ON, 2 WEEKS OFF

REACTIONS (4)
  - Carcinoembryonic antigen increased [Unknown]
  - Fatigue [Unknown]
  - Decreased appetite [Unknown]
  - Stomatitis [Unknown]
